FAERS Safety Report 6326347-X (Version None)
Quarter: 2009Q3

REPORT INFORMATION
  Report Type: 
  Country: None (occurrence: None)
  Receive Date: 20090821
  Receipt Date: 20090807
  Transmission Date: 20100115
  Serious: Yes (Death, Hospitalization, Other)
  Sender: FDA-Public Use
  Company Number: A-US2009-26771

PATIENT
  Age: 66 Year
  Sex: Male

DRUGS (20)
  1. TRACLEER [Suspect]
     Indication: PULMONARY ARTERIAL HYPERTENSION
     Dosage: 125 MG, BID, ORAL
     Route: 048
     Dates: start: 20030905
  2. LIPITOR [Suspect]
  3. VIAGRA [Concomitant]
  4. COUMADIN [Concomitant]
  5. ALDACTONE [Concomitant]
  6. PLAVIX [Concomitant]
  7. CITALOPRAM HYDROBROMIDE [Concomitant]
  8. GLIPIZIDE [Concomitant]
  9. LISINOPRIL [Concomitant]
  10. LYRICA [Concomitant]
  11. SINGULAIR [Concomitant]
  12. ADVAIR DISKUS 100/50 [Concomitant]
  13. SPIRIVA [Concomitant]
  14. MS CONTIN [Concomitant]
  15. PERCOCET [Concomitant]
  16. ASCORBIC ACID [Concomitant]
  17. COLACE (DOCUSATE SODIUM) [Concomitant]
  18. FLONASE [Concomitant]
  19. AZITHROMYCIN [Concomitant]
  20. LEVAQUIN [Concomitant]

REACTIONS (8)
  - CLOSTRIDIUM DIFFICILE COLITIS [None]
  - HEPATIC CANCER METASTATIC [None]
  - HEPATIC CIRRHOSIS [None]
  - NASOPHARYNGITIS [None]
  - PNEUMONIA [None]
  - PORTAL HYPERTENSION [None]
  - PORTAL VEIN THROMBOSIS [None]
  - TUMOUR THROMBOSIS [None]
